FAERS Safety Report 5619417-2 (Version None)
Quarter: 2008Q1

REPORT INFORMATION
  Report Type: 
  Country: None (occurrence: None)
  Receive Date: 20080114
  Receipt Date: 20070723
  Transmission Date: 20080703
  Serious: Yes (Hospitalization)
  Sender: FDA-Public Use
  Company Number: PHEH2007US005700

PATIENT
  Age: 15 Year
  Sex: Male

DRUGS (1)
  1. FOCALIN [Suspect]
     Indication: ATTENTION DEFICIT/HYPERACTIVITY DISORDER
     Dates: start: 20050901, end: 20070328

REACTIONS (2)
  - PARANOIA [None]
  - PSYCHOTIC DISORDER [None]
